FAERS Safety Report 15466399 (Version 1)
Quarter: 2018Q4

REPORT INFORMATION
  Report Type: Spontaneous
  Country: JP (occurrence: JP)
  Receive Date: 20181004
  Receipt Date: 20181004
  Transmission Date: 20190204
  Serious: Yes (Hospitalization, Other)
  Sender: FDA-Public Use
  Company Number: JP-AMGEN-JPNSP2018136524

PATIENT
  Sex: Male

DRUGS (2)
  1. ROMIPLATE [Suspect]
     Active Substance: ROMIPLOSTIM
     Indication: PLATELET COUNT DECREASED
     Dosage: UNK
     Route: 058
  2. RITUXAN [Concomitant]
     Active Substance: RITUXIMAB
     Indication: PLATELET COUNT DECREASED
     Dosage: UNK
     Route: 042
     Dates: end: 20180907

REACTIONS (3)
  - Cardiac failure congestive [Unknown]
  - Platelet count increased [Unknown]
  - Angina pectoris [Unknown]

NARRATIVE: CASE EVENT DATE: 201809
